FAERS Safety Report 8312051-5 (Version None)
Quarter: 2012Q2

REPORT INFORMATION
  Report Type: 
  Country: None (occurrence: None)
  Receive Date: 20120425
  Receipt Date: 20120411
  Transmission Date: 20120825
  Serious: Yes (Other)
  Sender: FDA-Public Use
  Company Number: CA-ELI_LILLY_AND_COMPANY-CA201204003489

PATIENT
  Age: 33 Year
  Sex: Female

DRUGS (3)
  1. CYMBALTA [Suspect]
     Dosage: 60 MG, QD
  2. VITAMIN D [Concomitant]
  3. NUVARING [Concomitant]

REACTIONS (3)
  - FACIAL SPASM [None]
  - TRISMUS [None]
  - DYSTONIA [None]
